FAERS Safety Report 20466865 (Version 1)
Quarter: 2022Q1

REPORT INFORMATION
  Report Type: Spontaneous
  Country: GB (occurrence: GB)
  Receive Date: 20220214
  Receipt Date: 20220214
  Transmission Date: 20220423
  Serious: Yes (Hospitalization, Congenital Anomaly, Other)
  Sender: FDA-Public Use
  Company Number: None

PATIENT

DRUGS (3)
  1. WARFARIN [Suspect]
     Active Substance: WARFARIN
     Route: 064
     Dates: start: 202011
  2. DALTEPARIN [Concomitant]
     Active Substance: DALTEPARIN
     Route: 064
     Dates: start: 202011, end: 202011
  3. APIXABAN [Concomitant]
     Active Substance: APIXABAN
     Indication: Embolism
     Route: 064
     Dates: start: 202011, end: 202011

REACTIONS (3)
  - Congenital cardiovascular anomaly [Not Recovered/Not Resolved]
  - Foetal exposure during pregnancy [Not Recovered/Not Resolved]
  - Contraindicated product administered [Not Recovered/Not Resolved]

NARRATIVE: CASE EVENT DATE: 20201101
